FAERS Safety Report 9101636 (Version 1)
Quarter: 2013Q1

REPORT INFORMATION
  Report Type: Report from Study
  Country: CA (occurrence: CA)
  Receive Date: 20130218
  Receipt Date: 20130218
  Transmission Date: 20140127
  Serious: Yes (Other)
  Sender: FDA-Public Use
  Company Number: CA-JNJFOC-20130205587

PATIENT
  Sex: Female
  Weight: 113.4 kg

DRUGS (3)
  1. REMICADE [Suspect]
     Indication: ANKYLOSING SPONDYLITIS
     Route: 042
     Dates: start: 2010
  2. REMICADE [Suspect]
     Indication: CROHN^S DISEASE
     Route: 042
     Dates: start: 2010
  3. DIOVAN [Concomitant]
     Indication: HYPERTENSION
     Route: 065

REACTIONS (2)
  - Iritis [Unknown]
  - Drug effect decreased [Unknown]
